FAERS Safety Report 4793622-X (Version None)
Quarter: 2005Q4

REPORT INFORMATION
  Report Type: 
  Country: None (occurrence: None)
  Receive Date: 20051011
  Receipt Date: 20050815
  Transmission Date: 20060501
  Serious: Yes (Hospitalization)
  Sender: FDA-Public Use
  Company Number: US-BOEHRINGER INGELHEIM PHARMACEUTICALS, INC.-2005-BP-14145BP

PATIENT
  Sex: Male

DRUGS (8)
  1. FLOMAX [Suspect]
     Indication: BENIGN PROSTATIC HYPERPLASIA
     Route: 048
     Dates: start: 20020101
  2. NEXIUM [Concomitant]
  3. ZANTAC [Concomitant]
  4. PREDNISONE [Concomitant]
  5. VALTREX [Concomitant]
  6. BACTRIM DS [Concomitant]
  7. IMURAN [Concomitant]
     Dates: start: 20040501
  8. PROGENF [Concomitant]
     Dates: start: 20040501

REACTIONS (2)
  - DIABETES MELLITUS NON-INSULIN-DEPENDENT [None]
  - LUNG TRANSPLANT [None]
